FAERS Safety Report 5165194-1 (Version None)
Quarter: 2006Q4

REPORT INFORMATION
  Report Type: 
  Country: None (occurrence: None)
  Receive Date: 20061124
  Receipt Date: 20061110
  Transmission Date: 20070319
  Serious: Yes (Other)
  Sender: FDA-Public Use
  Company Number: 2006140656

PATIENT
  Age: 56 Year
  Weight: 56 kg

DRUGS (2)
  1. EPLERENONE [Suspect]
     Indication: HYPOKALAEMIA
     Dosage: 50 MG, ORAL
     Route: 048
     Dates: start: 20060808, end: 20061010
  2. AMILORIDE              (AMILORIDE) [Concomitant]

REACTIONS (1)
  - UVEITIS [None]
